FAERS Safety Report 11963403 (Version 1)
Quarter: 2016Q1

REPORT INFORMATION
  Report Type: Spontaneous
  Country: US (occurrence: None)
  Receive Date: 20160121
  Receipt Date: 20160121
  Transmission Date: 20160526
  Serious: Yes (Other)
  Sender: FDA-Public Use
  Company Number: None

PATIENT
  Age: 63 Year
  Sex: Female
  Weight: 97.52 kg

DRUGS (6)
  1. IV FLUIDS [Concomitant]
     Active Substance: UNSPECIFIED INGREDIENT
  2. BENADRYL [Concomitant]
     Active Substance: DIPHENHYDRAMINE HYDROCHLORIDE
  3. METOCLOPRAMIDE HYDROCHLORIDE ODT 10 MG GAVIS PHARMACEUTICALS LLC [Suspect]
     Active Substance: METOCLOPRAMIDE HYDROCHLORIDE
     Indication: IMPAIRED GASTRIC EMPTYING
     Dosage: 1 PILL EVERY 6 HOURS TAKEN BY MOUTH
     Dates: start: 20160114, end: 20160117
  4. RANITIDINE [Concomitant]
     Active Substance: RANITIDINE\RANITIDINE HYDROCHLORIDE
  5. OMEPRAZOLE. [Concomitant]
     Active Substance: OMEPRAZOLE
  6. PREDNISONE. [Concomitant]
     Active Substance: PREDNISONE

REACTIONS (2)
  - Hypersensitivity [None]
  - Drug effect incomplete [None]

NARRATIVE: CASE EVENT DATE: 20160117
